FAERS Safety Report 10656753 (Version 1)
Quarter: 2014Q4

REPORT INFORMATION
  Report Type: Spontaneous
  Country: GB (occurrence: GB)
  Receive Date: 20141217
  Receipt Date: 20141217
  Transmission Date: 20150529
  Serious: Yes (Life-Threatening)
  Sender: FDA-Public Use
  Company Number: GB-009507513-1412GBR007016

PATIENT
  Age: 55 Year
  Sex: Male
  Weight: 72.57 kg

DRUGS (2)
  1. ZISPIN SOLTAB [Suspect]
     Active Substance: MIRTAZAPINE
     Dosage: 15 MG
     Route: 048
  2. ZISPIN SOLTAB [Suspect]
     Active Substance: MIRTAZAPINE
     Indication: DEPRESSION
     Dosage: 30MG
     Route: 048

REACTIONS (7)
  - Seizure [Unknown]
  - Sleep disorder [Unknown]
  - Confusional state [Unknown]
  - Syncope [Recovered/Resolved]
  - Headache [Unknown]
  - Paraesthesia [Unknown]
  - Dizziness [Unknown]

NARRATIVE: CASE EVENT DATE: 2007
